FAERS Safety Report 22354497 (Version 1)
Quarter: 2023Q2

REPORT INFORMATION
  Report Type: Spontaneous
  Country: US (occurrence: US)
  Receive Date: 20230523
  Receipt Date: 20230523
  Transmission Date: 20230721
  Serious: Yes (Hospitalization)
  Sender: FDA-Public Use
  Company Number: US-BAYER-2023A069939

PATIENT
  Age: 18 Month
  Sex: Male

DRUGS (3)
  1. KOVALTRY [Suspect]
     Active Substance: ANTIHEMOPHILIC FACTOR, HUMAN RECOMBINANT
     Dosage: 590 IU, QOD
  2. KOVALTRY [Suspect]
     Active Substance: ANTIHEMOPHILIC FACTOR, HUMAN RECOMBINANT
     Dosage: UNK, FOR THE MOUTH BLEED TREATMENT
     Dates: start: 20230512, end: 20230512
  3. KOVALTRY [Suspect]
     Active Substance: ANTIHEMOPHILIC FACTOR, HUMAN RECOMBINANT
     Dosage: UNK, FOR THE MOUTH BLEED TREATMENT
     Dates: start: 20230514, end: 20230514

REACTIONS (2)
  - Mouth haemorrhage [None]
  - Fall [None]

NARRATIVE: CASE EVENT DATE: 20230501
